FAERS Safety Report 10507436 (Version 2)
Quarter: 2014Q4

REPORT INFORMATION
  Report Type: Spontaneous
  Country: JP (occurrence: JP)
  Receive Date: 20141009
  Receipt Date: 20141028
  Transmission Date: 20150528
  Serious: Yes (Hospitalization, Other)
  Sender: FDA-Public Use
  Company Number: JP-ELI_LILLY_AND_COMPANY-JP201410000574

PATIENT
  Age: 83 Year
  Sex: Male

DRUGS (6)
  1. CRESTOR [Concomitant]
     Active Substance: ROSUVASTATIN CALCIUM
  2. ZALUTIA [Suspect]
     Active Substance: TADALAFIL
     Indication: PRODUCT USED FOR UNKNOWN INDICATION
     Dosage: UNK
     Route: 048
     Dates: start: 20140806
  3. BLOPRESS [Concomitant]
     Active Substance: CANDESARTAN CILEXETIL
  4. SILODOSIN [Concomitant]
     Active Substance: SILODOSIN
  5. NIFEDIPINE. [Concomitant]
     Active Substance: NIFEDIPINE
  6. UBRETID [Concomitant]
     Active Substance: DISTIGMINE BROMIDE

REACTIONS (1)
  - Cerebral infarction [Recovering/Resolving]

NARRATIVE: CASE EVENT DATE: 20140913
